FAERS Safety Report 7053391-X (Version None)
Quarter: 2010Q4

REPORT INFORMATION
  Report Type: 
  Country: None (occurrence: None)
  Receive Date: 20101020
  Receipt Date: 20091217
  Transmission Date: 20110411
  Serious: Yes (Other)
  Sender: FDA-Public Use
  Company Number: US-PFIZER INC-2009311999

PATIENT
  Sex: Female
  Weight: 75.782 kg

DRUGS (4)
  1. GABAPENTIN [Suspect]
     Indication: CONVULSION
     Route: 065
  2. GABAPENTIN [Suspect]
     Indication: ARTHRITIS
  3. RITUXAN [Suspect]
     Indication: CENTRAL NERVOUS SYSTEM LYMPHOMA
     Dosage: 1 PER 6 MONTH
     Route: 042
  4. IBANDRONIC ACID [Suspect]
     Indication: OSTEOPOROSIS
     Dosage: 150 MG, 1 PER 1 MONTH
     Route: 048

REACTIONS (7)
  - CONVULSION [None]
  - DIZZINESS [None]
  - DYSLEXIA [None]
  - MENTAL IMPAIRMENT [None]
  - SEDATION [None]
  - SLEEP DISORDER [None]
  - WEIGHT INCREASED [None]
